FAERS Safety Report 23187968 (Version 1)
Quarter: 2023Q4

REPORT INFORMATION
  Report Type: Spontaneous
  Country: US (occurrence: US)
  Receive Date: 20231115
  Receipt Date: 20231115
  Transmission Date: 20240109
  Serious: No
  Sender: FDA-Public Use
  Company Number: US-PFIZER INC-202300359987

PATIENT
  Age: 84 Year
  Sex: Female

DRUGS (2)
  1. XELJANZ XR [Suspect]
     Active Substance: TOFACITINIB CITRATE
     Dosage: 11 MG
  2. FLECAINIDE [Concomitant]
     Active Substance: FLECAINIDE
     Dosage: 50 MG (100MG BUT I CUT THEM IN HALF)

REACTIONS (1)
  - Pain [Unknown]
